FAERS Safety Report 10533107 (Version 1)
Quarter: 2014Q4

REPORT INFORMATION
  Report Type: Spontaneous
  Country: US (occurrence: US)
  Receive Date: 20141022
  Receipt Date: 20141022
  Transmission Date: 20150529
  Serious: No
  Sender: FDA-Public Use
  Company Number: US-BIOGENIDEC-2014BI108145

PATIENT
  Age: 52 Year
  Sex: Female

DRUGS (1)
  1. TECFIDERA [Suspect]
     Active Substance: DIMETHYL FUMARATE
     Indication: MULTIPLE SCLEROSIS
     Dates: start: 20140921

REACTIONS (4)
  - Flushing [Unknown]
  - Vomiting [Recovered/Resolved]
  - Eructation [Unknown]
  - Nausea [Unknown]

NARRATIVE: CASE EVENT DATE: 2014
